FAERS Safety Report 21485633 (Version 1)
Quarter: 2022Q4

REPORT INFORMATION
  Report Type: Spontaneous
  Country: US (occurrence: None)
  Receive Date: 20221019
  Receipt Date: 20221019
  Transmission Date: 20230113
  Serious: Yes (Hospitalization)
  Sender: FDA-Public Use
  Company Number: None

PATIENT
  Sex: Female

DRUGS (9)
  1. SPRYCEL [Suspect]
     Active Substance: DASATINIB
     Indication: Philadelphia positive chronic myeloid leukaemia
     Route: 048
     Dates: start: 20220516
  2. AZITHROMYCIN [Concomitant]
  3. MEDROXYPR AC TAB [Concomitant]
  4. METHOCARBAM TAB [Concomitant]
  5. ONDANSETRON TAB [Concomitant]
  6. ONDANSETRON TAB [Concomitant]
  7. VALLACYCLOVIR TAB [Concomitant]
  8. VITAMIN D CAJP [Concomitant]
  9. XARELTO TAB [Concomitant]

REACTIONS (2)
  - Hospitalisation [None]
  - Therapy interrupted [None]
